FAERS Safety Report 9190826 (Version 12)
Quarter: 2015Q4

REPORT INFORMATION
  Report Type: Spontaneous
  Country: US (occurrence: US)
  Receive Date: 20130326
  Receipt Date: 20151023
  Transmission Date: 20160305
  Serious: Yes (Death, Hospitalization, Other)
  Sender: FDA-Public Use
  Company Number: US-GLAXOSMITHKLINE-A1014996A

PATIENT
  Age: 62 Year
  Sex: Female

DRUGS (13)
  1. FLOLAN [Suspect]
     Active Substance: EPOPROSTENOL SODIUM
     Indication: COR PULMONALE CHRONIC
     Dosage: 19NG/KG/MINUTE CONTINUOUSLYDOSE: 32 NG/KG/MIN, CONC: 30,000 NG/ML, PUMP RATE: 78 ML/DAY, VIAL S[...]
     Route: 042
     Dates: start: 20030219
  2. FLOLAN [Suspect]
     Active Substance: EPOPROSTENOL SODIUM
     Dosage: UNK
     Dates: start: 20030219
  3. FLOLAN [Suspect]
     Active Substance: EPOPROSTENOL SODIUM
     Dosage: UNK
     Dates: start: 20030219
  4. FLOLAN [Suspect]
     Active Substance: EPOPROSTENOL SODIUM
     Dosage: UNK
     Dates: start: 20030219
  5. REVATIO [Concomitant]
     Active Substance: SILDENAFIL CITRATE
  6. FLOLAN [Suspect]
     Active Substance: EPOPROSTENOL SODIUM
     Dosage: UNK, CO
     Dates: start: 20061115
  7. FLOLAN [Suspect]
     Active Substance: EPOPROSTENOL SODIUM
     Dosage: UNK
     Dates: start: 20030219
  8. TRACLEER [Concomitant]
     Active Substance: BOSENTAN
  9. FLOLAN [Suspect]
     Active Substance: EPOPROSTENOL SODIUM
     Indication: PULMONARY HYPERTENSION
     Dosage: UNK
     Dates: start: 20030219
  10. FLOLAN [Suspect]
     Active Substance: EPOPROSTENOL SODIUM
     Dosage: 39 NG/KG/MIN CONTINUOUSLY, CONCENTRATION: 30,000 NG/ML, PUMP RATE: 80 ML/DAY, VIAL STRENGTH: 1.5 MG
     Route: 042
     Dates: start: 20030219
  11. COUMADIN [Concomitant]
     Active Substance: WARFARIN SODIUM
  12. FLOLAN [Suspect]
     Active Substance: EPOPROSTENOL SODIUM
     Dosage: 45 NG/KG/MIN CONTINUOUSLY, CONCENTRATION: 45,000 NG/ML, PUMP RATE: 62 ML/DAY, VIAL STRENGTH: 1.5 MG
     Route: 042
     Dates: start: 20061115
  13. FLOLAN [Suspect]
     Active Substance: EPOPROSTENOL SODIUM
     Dosage: 46 NG/KG/MIN CONTINUOUS
     Route: 042
     Dates: start: 20061115

REACTIONS (19)
  - Shock [Fatal]
  - Headache [Unknown]
  - Malaise [Unknown]
  - Emergency care [Unknown]
  - Colon operation [Unknown]
  - Pulmonary arterial hypertension [Fatal]
  - Drug ineffective [Unknown]
  - Hospitalisation [Unknown]
  - Adverse event [Unknown]
  - Intestinal obstruction [Unknown]
  - Extrasystoles [Unknown]
  - Surgery [Unknown]
  - Disease progression [Fatal]
  - Ileostomy [Unknown]
  - Dehydration [Unknown]
  - Central venous catheterisation [Unknown]
  - Nausea [Unknown]
  - Heart rate irregular [Unknown]
  - Post procedural complication [Unknown]

NARRATIVE: CASE EVENT DATE: 20140917
